FAERS Safety Report 4441413-1 (Version None)
Quarter: 2004Q3

REPORT INFORMATION
  Report Type: 
  Country: None (occurrence: None)
  Receive Date: 20040728
  Receipt Date: 20040407
  Transmission Date: 20050211
  Serious: No
  Sender: FDA-Public Use
  Company Number: USA040464398

PATIENT
  Age: 6 Year
  Sex: Male
  Weight: 23 kg

DRUGS (3)
  1. STRATTERA [Suspect]
     Indication: ATTENTION DEFICIT/HYPERACTIVITY DISORDER
     Dosage: 25 MG IN THE MORNING
     Dates: start: 20040401
  2. ZYRTEC [Concomitant]
  3. SINGULAIR [Concomitant]

REACTIONS (5)
  - FATIGUE [None]
  - INITIAL INSOMNIA [None]
  - IRRITABILITY [None]
  - LETHARGY [None]
  - PSYCHOMOTOR HYPERACTIVITY [None]
